FAERS Safety Report 13657973 (Version 4)
Quarter: 2017Q3

REPORT INFORMATION
  Report Type: Report from Study
  Country: None (occurrence: US)
  Receive Date: 20170616
  Receipt Date: 20170817
  Transmission Date: 20171127
  Serious: Yes (Hospitalization, Other)
  Sender: FDA-Public Use
  Company Number: US-ABBVIE-17K-163-2008010-00

PATIENT
  Age: 70 Year
  Sex: Female
  Weight: 81.72 kg

DRUGS (10)
  1. CELEBREX [Concomitant]
     Active Substance: CELECOXIB
     Indication: PRODUCT USED FOR UNKNOWN INDICATION
     Dates: end: 201705
  2. LOSARTAN. [Concomitant]
     Active Substance: LOSARTAN
     Indication: HYPERTENSION
  3. PANTOPRAZOLE [Concomitant]
     Active Substance: PANTOPRAZOLE
     Indication: GASTROOESOPHAGEAL REFLUX DISEASE
  4. HUMIRA [Suspect]
     Active Substance: ADALIMUMAB
     Route: 058
     Dates: start: 2017, end: 20170608
  5. VITAMIN B [Concomitant]
     Active Substance: VITAMIN B
     Dates: start: 201707
  6. VITAMIN D [Concomitant]
     Active Substance: CHOLECALCIFEROL
     Indication: PRODUCT USED FOR UNKNOWN INDICATION
     Dates: end: 201705
  7. HUMIRA [Suspect]
     Active Substance: ADALIMUMAB
     Indication: PSORIATIC ARTHROPATHY
     Route: 058
     Dates: start: 201612, end: 20170512
  8. VITAMIN D [Concomitant]
     Active Substance: CHOLECALCIFEROL
     Dates: start: 201707
  9. VITAMIN B [Concomitant]
     Active Substance: VITAMIN B
     Indication: PRODUCT USED FOR UNKNOWN INDICATION
     Dates: end: 201705
  10. CELEBREX [Concomitant]
     Active Substance: CELECOXIB
     Dates: start: 201707

REACTIONS (5)
  - Mobility decreased [Recovering/Resolving]
  - Spinal disorder [Unknown]
  - Hypoaesthesia [Recovered/Resolved]
  - Pain in extremity [Recovered/Resolved]
  - Procedural pain [Recovering/Resolving]

NARRATIVE: CASE EVENT DATE: 2017
